FAERS Safety Report 15775954 (Version 2)
Quarter: 2019Q1

REPORT INFORMATION
  Report Type: Spontaneous
  Country: ES (occurrence: ES)
  Receive Date: 20181231
  Receipt Date: 20190118
  Transmission Date: 20190417
  Serious: Yes (Other)
  Sender: FDA-Public Use
  Company Number: ES-ACCORD-097854

PATIENT
  Age: 71 Year
  Sex: Female
  Weight: 55 kg

DRUGS (3)
  1. OXALIPLATIN. [Concomitant]
     Active Substance: OXALIPLATIN
     Indication: COLON CANCER
     Route: 042
     Dates: start: 20181212, end: 20181212
  2. FLUOROURACIL ACCORD [Suspect]
     Active Substance: FLUOROURACIL
     Indication: COLON CANCER
     Dosage: DOSE: 1896 (UNIT UNSPECIFIED)
     Route: 042
     Dates: start: 20181213, end: 20181215
  3. FOLINIC ACID [Concomitant]
     Active Substance: LEUCOVORIN
     Indication: COLON CANCER
     Route: 042
     Dates: start: 20181212, end: 20181212

REACTIONS (4)
  - Confusional state [Recovering/Resolving]
  - Nausea [Recovering/Resolving]
  - Vomiting [Recovering/Resolving]
  - Hypotension [Recovering/Resolving]
